FAERS Safety Report 8348274 (Version 4)
Quarter: 2013Q3

REPORT INFORMATION
  Report Type: Spontaneous
  Country: US (occurrence: US)
  Receive Date: 20120123
  Receipt Date: 20130813
  Transmission Date: 20140515
  Serious: Yes (Other)
  Sender: FDA-Public Use
  Company Number: US-JNJFOC-20120107575

PATIENT
  Age: 80 Year
  Sex: Female
  Weight: 60.78 kg

DRUGS (1)
  1. NUCYNTA [Suspect]
     Indication: PAIN
     Route: 048
     Dates: start: 20111229, end: 20111230

REACTIONS (5)
  - Loss of consciousness [Recovered/Resolved]
  - Hallucination, auditory [Recovered/Resolved]
  - Malaise [Unknown]
  - Nervousness [Not Recovered/Not Resolved]
  - Insomnia [Recovered/Resolved]
